FAERS Safety Report 9285861 (Version 1)
Quarter: 2013Q2

REPORT INFORMATION
  Report Type: Spontaneous
  Country: US (occurrence: None)
  Receive Date: 20130510
  Receipt Date: 20130510
  Transmission Date: 20140414
  Serious: Yes (Hospitalization)
  Sender: FDA-Public Use
  Company Number: None

PATIENT
  Age: 79 None
  Sex: Female
  Weight: 45.81 kg

DRUGS (1)
  1. CIMZIA [Suspect]
     Indication: RHEUMATOID ARTHRITIS
     Dates: start: 20121119

REACTIONS (5)
  - Rash [None]
  - Cardiac failure [None]
  - Urinary tract infection [None]
  - Pneumonia [None]
  - Night sweats [None]
